FAERS Safety Report 4570910-3 (Version None)
Quarter: 2005Q1

REPORT INFORMATION
  Report Type: 
  Country: None (occurrence: None)
  Receive Date: 20050118
  Receipt Date: 20040721
  Transmission Date: 20050727
  Serious: Yes (Other)
  Sender: FDA-Public Use
  Company Number: HQWYE341422JUL04

PATIENT
  Sex: Female
  Weight: 75.82 kg

DRUGS (7)
  1. PREMPRO [Suspect]
     Indication: MENOPAUSAL SYMPTOMS
     Dosage: 0.625MG/2.5MG ORAL
     Route: 048
     Dates: start: 19970101, end: 20000101
  2. ESTROGENS (ESTROGENS) [Suspect]
  3. MEDROXYPROGESTERONE ACETATE [Suspect]
  4. PREMARIN [Suspect]
     Indication: MENOPAUSAL SYMPTOMS
     Dosage: 0.9 MG 1X PER 1 DAY ORAL
     Route: 048
     Dates: start: 20011201, end: 20020101
  5. PROVERA [Suspect]
  6. LIPITOR [Concomitant]
  7. HYZAAR [Concomitant]

REACTIONS (1)
  - BREAST CANCER [None]
